FAERS Safety Report 8169380-8 (Version None)
Quarter: 2012Q1

REPORT INFORMATION
  Report Type: 
  Country: None (occurrence: None)
  Receive Date: 20120222
  Receipt Date: 20120212
  Transmission Date: 20120608
  Serious: Yes (Disabling)
  Sender: FDA-Public Use
  Company Number: 2012SP006251

PATIENT
  Age: 21 Year
  Sex: Female

DRUGS (2)
  1. IMPLANON (ETONOGESTREL /01502301/) [Suspect]
     Indication: CONTRACEPTION
     Dosage: 1 DF;
     Dates: start: 20090216, end: 20120130
  2. IMPLANON (ETONOGESTREL /01502301/) [Suspect]

REACTIONS (4)
  - IMPLANT SITE REACTION [None]
  - DEVICE BREAKAGE [None]
  - MEDICAL DEVICE COMPLICATION [None]
  - HYPERKERATOSIS [None]
